FAERS Safety Report 21600520 (Version 1)
Quarter: 2022Q4

REPORT INFORMATION
  Report Type: Spontaneous
  Country: US (occurrence: US)
  Receive Date: 20221116
  Receipt Date: 20221116
  Transmission Date: 20230113
  Serious: No
  Sender: FDA-Public Use
  Company Number: None

PATIENT
  Sex: Male

DRUGS (1)
  1. THIOTHIXENE [Suspect]
     Active Substance: THIOTHIXENE
     Indication: Product used for unknown indication

REACTIONS (3)
  - Malaise [Unknown]
  - Drug ineffective [Unknown]
  - Wrong technique in product usage process [Unknown]
